FAERS Safety Report 20232622 (Version 1)
Quarter: 2021Q4

REPORT INFORMATION
  Report Type: Spontaneous
  Country: US (occurrence: None)
  Receive Date: 20211223
  Receipt Date: 20211223
  Transmission Date: 20220303
  Serious: Yes (Death)
  Sender: FDA-Public Use
  Company Number: None

PATIENT
  Age: 66 Year
  Sex: Male

DRUGS (1)
  1. ZARXIO [Suspect]
     Active Substance: FILGRASTIM-SNDZ
     Indication: Product used for unknown indication
     Dosage: OTHER STRENGTH : 480MCG/0.8ML;?
     Route: 058
     Dates: start: 202109, end: 20211222

REACTIONS (1)
  - Death [None]

NARRATIVE: CASE EVENT DATE: 20211222
